FAERS Safety Report 5003707-0 (Version None)
Quarter: 2006Q2

REPORT INFORMATION
  Report Type: 
  Country: None (occurrence: None)
  Receive Date: 20060516
  Receipt Date: 20060317
  Transmission Date: 20061013
  Serious: Yes (Hospitalization, Disabling)
  Sender: FDA-Public Use
  Company Number: US-MERCK-0603USA03323

PATIENT
  Age: 54 Year
  Sex: Male
  Weight: 89 kg

DRUGS (7)
  1. VIOXX [Suspect]
     Indication: NECK PAIN
     Route: 048
     Dates: start: 20030601, end: 20040401
  2. VIOXX [Suspect]
     Indication: BACK PAIN
     Route: 048
     Dates: start: 20030601, end: 20040401
  3. EXCEDRIN (ACETAMINOPHEN (+) CAFFEINE) [Concomitant]
     Indication: ANALGESIC EFFECT
     Route: 065
     Dates: start: 20020601, end: 20040401
  4. ENDOMYCIN [Concomitant]
     Indication: GOUT
     Route: 065
     Dates: start: 20020701
  5. LIPITOR [Concomitant]
     Indication: BLOOD CHOLESTEROL INCREASED
     Route: 065
     Dates: start: 20031001
  6. ASPIRIN [Concomitant]
     Indication: ANALGESIC EFFECT
     Route: 065
  7. TYLENOL (CAPLET) [Concomitant]
     Indication: ANALGESIC EFFECT
     Route: 065
     Dates: start: 20020601, end: 20040401

REACTIONS (4)
  - INJURY [None]
  - MULTI-ORGAN DISORDER [None]
  - MYOCARDIAL INFARCTION [None]
  - VISION BLURRED [None]
